FAERS Safety Report 18703767 (Version 2)
Quarter: 2021Q1

REPORT INFORMATION
  Report Type: Report from Study
  Country: US (occurrence: US)
  Receive Date: 20210105
  Receipt Date: 20210121
  Transmission Date: 20210419
  Serious: Yes (Hospitalization)
  Sender: FDA-Public Use
  Company Number: US-UPSHER-SMITH LABORATORIES, LLC-2020USL02541

PATIENT
  Age: 1 Year
  Sex: Female
  Weight: 9.98 kg

DRUGS (4)
  1. SABRIL [Suspect]
     Active Substance: VIGABATRIN
     Indication: INFANTILE SPASMS
     Dosage: DISSOLVED 2 PACKETS IN WATER AND WOULD GIVE 1.5 PACKETS, 2X/DAY
     Route: 048
     Dates: start: 201607, end: 201706
  2. UNSPECIFIED SEIZURE MEDICATIONS [Concomitant]
     Active Substance: UNSPECIFIED INGREDIENT
  3. VIGABATRIN. [Suspect]
     Active Substance: VIGABATRIN
     Indication: INFANTILE SPASMS
     Dosage: DISSOLVED 2 PACKETS IN WATER AND WOULD GIVE 1.5 PACKETS, 2X/DAY
     Route: 048
     Dates: start: 201607, end: 201706
  4. MITOCHONDRIAL COCKTAIL OF VITAMINS [Concomitant]

REACTIONS (4)
  - Haemoglobin decreased [Recovered/Resolved]
  - Myelosuppression [Recovered/Resolved]
  - Drug ineffective [Recovered/Resolved]
  - Vomiting [Unknown]

NARRATIVE: CASE EVENT DATE: 201607
